FAERS Safety Report 25059042 (Version 1)
Quarter: 2025Q1

REPORT INFORMATION
  Report Type: Spontaneous
  Country: FR (occurrence: FR)
  Receive Date: 20250310
  Receipt Date: 20250310
  Transmission Date: 20250409
  Serious: Yes (Other)
  Sender: CHEPLAPHARM
  Company Number: None

PATIENT
  Age: 61 Year
  Sex: Female
  Weight: 56 kg

DRUGS (12)
  1. HYDROXYUREA [Suspect]
     Active Substance: HYDROXYUREA
     Indication: Essential thrombocythaemia
     Dates: start: 202307, end: 202311
  2. HYDROXYUREA [Suspect]
     Active Substance: HYDROXYUREA
     Indication: Essential thrombocythaemia
     Dosage: DAILY DOSE: 2 DOSAGE FORM
     Dates: start: 20231226, end: 20240215
  3. HYDROXYUREA [Suspect]
     Active Substance: HYDROXYUREA
     Indication: Essential thrombocythaemia
     Dosage: 2-3 CAPSULES PER DAY?DAILY DOSE: 1500 MILLIGRAM
     Route: 048
     Dates: start: 20240615
  4. PEGASYS [Suspect]
     Active Substance: PEGINTERFERON ALFA-2A
  5. TAHOR [Concomitant]
     Active Substance: ATORVASTATIN CALCIUM
  6. EZETIMIBE [Concomitant]
     Active Substance: EZETIMIBE
  7. ASPIRIN [Concomitant]
     Active Substance: ASPIRIN
  8. KARDEGIC [Concomitant]
     Active Substance: ASPIRIN DL-LYSINE
     Dosage: DAILY DOSE: 75 MILLIGRAM
  9. TICAGRELOR [Concomitant]
     Active Substance: TICAGRELOR
  10. ATORVASTATIN [Concomitant]
     Active Substance: ATORVASTATIN
     Dosage: DAILY DOSE: 80 MILLIGRAM
  11. ANAGRELIDE [Concomitant]
     Active Substance: ANAGRELIDE
  12. ANAGRELIDE [Concomitant]
     Active Substance: ANAGRELIDE

REACTIONS (3)
  - Carpal tunnel syndrome [Not Recovered/Not Resolved]
  - Acute coronary syndrome [Unknown]
  - Treatment failure [Unknown]

NARRATIVE: CASE EVENT DATE: 20230701
